FAERS Safety Report 25600940 (Version 1)
Quarter: 2025Q3

REPORT INFORMATION
  Report Type: Spontaneous
  Country: EU (occurrence: EU)
  Receive Date: 20250724
  Receipt Date: 20250724
  Transmission Date: 20251021
  Serious: Yes (Hospitalization, Other)
  Sender: CHEPLAPHARM
  Company Number: None

PATIENT
  Age: 46 Year
  Sex: Female
  Weight: 68 kg

DRUGS (7)
  1. QUETIAPINE [Suspect]
     Active Substance: QUETIAPINE
     Indication: Bipolar disorder
  2. QUETIAPINE [Suspect]
     Active Substance: QUETIAPINE
     Indication: Bipolar disorder
  3. BROMAZEPAM [Suspect]
     Active Substance: BROMAZEPAM
  4. TERALITHE [Suspect]
     Active Substance: LITHIUM CARBONATE
     Indication: Bipolar disorder
     Dosage: 400 MG/SCORED EXTENDED-RELEASE TABLET?DAILY DOSE: 2 DOSAGE FORM
     Route: 048
     Dates: start: 20250301, end: 20250610
  5. TERALITHE [Suspect]
     Active Substance: LITHIUM CARBONATE
     Indication: Bipolar disorder
     Dosage: 250 MG/SCORED TABLET?DAILY DOSE: 4 DOSAGE FORM
     Route: 048
     Dates: start: 20250301, end: 20250610
  6. DIAZEPAM [Suspect]
     Active Substance: DIAZEPAM
  7. LORMETAZEPAM [Suspect]
     Active Substance: LORMETAZEPAM

REACTIONS (7)
  - Confusional state [Recovered/Resolved]
  - Pneumococcal infection [Recovered/Resolved]
  - Hypernatraemia [Recovered/Resolved]
  - Nephrogenic diabetes insipidus [Recovered/Resolved]
  - Weight decreased [Unknown]
  - General physical health deterioration [Unknown]
  - Product supply issue [Recovered/Resolved]

NARRATIVE: CASE EVENT DATE: 20250610
